FAERS Safety Report 7010806-0 (Version None)
Quarter: 2010Q3

REPORT INFORMATION
  Report Type: 
  Country: None (occurrence: None)
  Receive Date: 20100923
  Receipt Date: 20100923
  Transmission Date: 20110219
  Serious: Yes (Other)
  Sender: FDA-Public Use
  Company Number: None

PATIENT
  Age: 58 Year
  Sex: Female
  Weight: 82.5547 kg

DRUGS (1)
  1. NIASPAN [Suspect]
     Indication: BLOOD TRIGLYCERIDES INCREASED
     Dosage: ONE PER DAY PO
     Route: 048
     Dates: start: 20100801, end: 20100820

REACTIONS (5)
  - CHEST PAIN [None]
  - DIARRHOEA [None]
  - INSOMNIA [None]
  - PALPITATIONS [None]
  - VOMITING [None]
